FAERS Safety Report 4382071-4 (Version None)
Quarter: 2004Q2

REPORT INFORMATION
  Report Type: 
  Country: None (occurrence: None)
  Receive Date: 20040603
  Receipt Date: 20030412
  Transmission Date: 20050107
  Serious: Yes (Other)
  Sender: FDA-Public Use
  Company Number: 200313562US

PATIENT
  Sex: Female

DRUGS (1)
  1. HEPARIN-FRACTION, SODIUM SLT (LOVENOX) [Suspect]
     Indication: ANGINA UNSTABLE

REACTIONS (1)
  - ABDOMINAL HAEMATOMA [None]
